FAERS Safety Report 23755223 (Version 1)
Quarter: 2024Q2

REPORT INFORMATION
  Report Type: Report from Study
  Country: US (occurrence: US)
  Receive Date: 20240418
  Receipt Date: 20240418
  Transmission Date: 20240716
  Serious: Yes (Hospitalization, Disabling, Other)
  Sender: FDA-Public Use
  Company Number: US-SA-2024SA036425

PATIENT
  Age: 61 Year
  Sex: Female

DRUGS (3)
  1. SUTIMLIMAB-JOME [Suspect]
     Active Substance: SUTIMLIMAB-JOME
     Indication: Cold type haemolytic anaemia
     Dosage: 6.5 (UNITS NOT SPECIFIED) , QOW
     Route: 042
     Dates: start: 20231215, end: 20240105
  2. SUTIMLIMAB-JOME [Suspect]
     Active Substance: SUTIMLIMAB-JOME
     Dosage: UNK, QOW
     Route: 042
     Dates: start: 20240119, end: 20240216
  3. SUTIMLIMAB-JOME [Suspect]
     Active Substance: SUTIMLIMAB-JOME
     Dosage: UNK, QOW
     Route: 042

REACTIONS (18)
  - Arthralgia [Not Recovered/Not Resolved]
  - Diverticulitis [Not Recovered/Not Resolved]
  - COVID-19 [Not Recovered/Not Resolved]
  - Cough [Not Recovered/Not Resolved]
  - Pain [Not Recovered/Not Resolved]
  - Cystitis [Not Recovered/Not Resolved]
  - Urinary tract infection bacterial [Recovering/Resolving]
  - Urinary tract pain [Recovering/Resolving]
  - Pelvic pain [Recovering/Resolving]
  - Bladder pain [Recovering/Resolving]
  - Condition aggravated [Recovering/Resolving]
  - Urinary retention [Recovering/Resolving]
  - Micturition urgency [Recovering/Resolving]
  - Colitis [Unknown]
  - Limb mass [Not Recovered/Not Resolved]
  - Rhinorrhoea [Not Recovered/Not Resolved]
  - Fatigue [Not Recovered/Not Resolved]
  - Headache [Not Recovered/Not Resolved]

NARRATIVE: CASE EVENT DATE: 20231231
